FAERS Safety Report 8924410 (Version 1)
Quarter: 2012Q4

REPORT INFORMATION
  Report Type: 
  Country: BR (occurrence: BR)
  Receive Date: 20121126
  Receipt Date: 20121126
  Transmission Date: 20130627
  Serious: Yes (Other)
  Sender: FDA-Public Use
  Company Number: BR-009507513-1211BRA010252

PATIENT
  Age: 33 None
  Sex: Female
  Weight: 53 kg

DRUGS (1)
  1. NUVARING [Suspect]
     Indication: CONTRACEPTION
     Dosage: UNK
     Route: 067
     Dates: start: 2010

REACTIONS (6)
  - Mammoplasty [Recovered/Resolved]
  - Liposuction [Recovered/Resolved]
  - Oesophagitis [Unknown]
  - Reflux gastritis [Unknown]
  - Metrorrhagia [Unknown]
  - Drug administration error [Unknown]
